FAERS Safety Report 9958111 (Version 1)
Quarter: 2014Q1

REPORT INFORMATION
  Report Type: Report from Study
  Country: US (occurrence: US)
  Receive Date: 20140304
  Receipt Date: 20140304
  Transmission Date: 20141002
  Serious: No
  Sender: FDA-Public Use
  Company Number: US-ABBVIE-13P-163-1095121-00

PATIENT
  Sex: Female

DRUGS (9)
  1. HUMIRA [Suspect]
     Indication: RHEUMATOID ARTHRITIS
     Route: 058
     Dates: start: 201303
  2. CARISOPRODOL [Concomitant]
     Indication: MUSCLE RELAXANT THERAPY
  3. NEXIUM [Concomitant]
     Indication: GASTROOESOPHAGEAL REFLUX DISEASE
     Dosage: 40MG DAILY
  4. CLONAZEPAM [Concomitant]
     Indication: TREMOR
     Dosage: 0.5MG DAILY
  5. CELEBREX [Concomitant]
     Indication: ARTHRALGIA
     Dosage: 200MG DAILY
  6. LYRICA [Concomitant]
     Indication: FIBROMYALGIA
     Dosage: 75MG DAILY
  7. PREMARIN [Concomitant]
     Indication: HORMONE REPLACEMENT THERAPY
     Dosage: 0.625 MG DAILY
  8. VITAMIN D2 [Concomitant]
     Indication: VITAMIN SUPPLEMENTATION
     Dosage: 1.25MG DAILY
  9. SYNTHROID [Concomitant]
     Indication: HYPOTHYROIDISM
     Dosage: 100MCG DAILY

REACTIONS (3)
  - Inappropriate schedule of drug administration [Recovering/Resolving]
  - Wrong technique in drug usage process [Recovering/Resolving]
  - Injection site pain [Recovering/Resolving]
